FAERS Safety Report 8308507-1 (Version None)
Quarter: 2012Q2

REPORT INFORMATION
  Report Type: 
  Country: None (occurrence: None)
  Receive Date: 20120424
  Receipt Date: 20110808
  Transmission Date: 20120825
  Serious: Yes (Other)
  Sender: FDA-Public Use
  Company Number: US-TEVA-2009010204

PATIENT
  Sex: Female
  Weight: 83.082 kg

DRUGS (2)
  1. PROVIGIL [Suspect]
     Indication: FATIGUE
     Dosage: 200 MILLIGRAM;
     Route: 048
     Dates: start: 20090828, end: 20090901
  2. AVONEX [Concomitant]
     Dates: start: 20080801

REACTIONS (5)
  - COGNITIVE DISORDER [None]
  - RASH PRURITIC [None]
  - BRADYPHRENIA [None]
  - HEADACHE [None]
  - EUPHORIC MOOD [None]
